FAERS Safety Report 4590447-5 (Version None)
Quarter: 2005Q1

REPORT INFORMATION
  Report Type: 
  Country: None (occurrence: None)
  Receive Date: 20050218
  Receipt Date: 20050218
  Transmission Date: 20050727
  Serious: Yes (Other)
  Sender: FDA-Public Use
  Company Number: None

PATIENT
  Age: 69 Year
  Sex: Male

DRUGS (4)
  1. OMEPRAZOLE [Suspect]
     Indication: GASTROOESOPHAGEAL REFLUX DISEASE
     Dosage: 20MG PO ONCE A DAY   5 YEARS ON AZN BRAND AND 2 WEEKS ON APOTEK
     Route: 048
  2. FLOMAX [Concomitant]
  3. FUROSEMIDE [Concomitant]
  4. FLONASE [Concomitant]

REACTIONS (4)
  - ABDOMINAL DISCOMFORT [None]
  - DYSPEPSIA [None]
  - NAUSEA [None]
  - PHARMACEUTICAL PRODUCT COMPLAINT [None]
